FAERS Safety Report 5050010-9 (Version None)
Quarter: 2006Q3

REPORT INFORMATION
  Report Type: 
  Country: None (occurrence: None)
  Receive Date: 20060713
  Receipt Date: 20060706
  Transmission Date: 20061208
  Serious: Yes (Life-Threatening)
  Sender: FDA-Public Use
  Company Number: 2006AP03098

PATIENT
  Age: 18959 Day
  Sex: Female

DRUGS (6)
  1. PROPOFOL [Suspect]
     Indication: SENSORY DISTURBANCE
     Route: 042
     Dates: start: 20060311, end: 20060311
  2. ROCURONIUM BROMIDE [Suspect]
     Indication: SENSORY DISTURBANCE
     Dates: start: 20060311, end: 20060311
  3. CEFTRIAXONE [Suspect]
     Indication: PREMEDICATION
     Dates: start: 20060311, end: 20060311
  4. MIDAZOLAM HYDROCHLORIDE [Suspect]
     Indication: SENSORY DISTURBANCE
     Dates: start: 20060311, end: 20060311
  5. FENTANYL TRANSDERMAL SYSTEM [Suspect]
     Indication: SENSORY DISTURBANCE
     Dates: start: 20060311, end: 20060311
  6. DEXAMETHASONE TAB [Suspect]
     Indication: SENSORY DISTURBANCE
     Dates: start: 20060311, end: 20060311

REACTIONS (3)
  - ANAPHYLACTIC REACTION [None]
  - PALLOR [None]
  - WHEEZING [None]
